FAERS Safety Report 15391144 (Version 2)
Quarter: 2018Q3

REPORT INFORMATION
  Report Type: Report from Study
  Country: MA (occurrence: MA)
  Receive Date: 20180917
  Receipt Date: 20180925
  Transmission Date: 20181010
  Serious: Yes (Other)
  Sender: FDA-Public Use
  Company Number: MA-EMD SERONO-9043958

PATIENT
  Age: 46 Year
  Sex: Female

DRUGS (1)
  1. REBIF [Suspect]
     Active Substance: INTERFERON BETA-1A
     Indication: MULTIPLE SCLEROSIS
     Route: 058
     Dates: start: 201403

REACTIONS (2)
  - Inflammation [Not Recovered/Not Resolved]
  - Necrosis [Recovering/Resolving]

NARRATIVE: CASE EVENT DATE: 20180730
